FAERS Safety Report 10353961 (Version 1)
Quarter: 2014Q3

REPORT INFORMATION
  Report Type: Spontaneous
  Country: US (occurrence: None)
  Receive Date: 20140729
  Receipt Date: 20140729
  Transmission Date: 20150326
  Serious: Yes (Hospitalization)
  Sender: FDA-Public Use
  Company Number: None

PATIENT
  Age: 77 Year
  Sex: Male
  Weight: 80.74 kg

DRUGS (2)
  1. XARELTO [Suspect]
     Active Substance: RIVAROXABAN
     Indication: ATRIAL FIBRILLATION
     Route: 048
     Dates: start: 20140718, end: 20140725
  2. XARELTO [Suspect]
     Active Substance: RIVAROXABAN
     Indication: INTERNATIONAL NORMALISED RATIO FLUCTUATION
     Route: 048
     Dates: start: 20140718, end: 20140725

REACTIONS (7)
  - Faeces discoloured [None]
  - Asthenia [None]
  - Diarrhoea [None]
  - Abdominal pain [None]
  - Fatigue [None]
  - Haemoglobin decreased [None]
  - Gastrointestinal haemorrhage [None]

NARRATIVE: CASE EVENT DATE: 20140725
